FAERS Safety Report 21411056 (Version 5)
Quarter: 2022Q4

REPORT INFORMATION
  Report Type: Report from Study
  Country: US (occurrence: US)
  Receive Date: 20221005
  Receipt Date: 20221107
  Transmission Date: 20230113
  Serious: Yes (Hospitalization, Other)
  Sender: FDA-Public Use
  Company Number: US-HBP-2021US023785

PATIENT
  Sex: Female

DRUGS (4)
  1. TRUSELTIQ [Suspect]
     Active Substance: INFIGRATINIB
     Indication: Cholangiocarcinoma
     Dosage: 100 MILLIGRAM, QD, 21 DAYS ON, 7 DAYS OFF
     Route: 048
     Dates: start: 20211025, end: 20211109
  2. TRUSELTIQ [Suspect]
     Active Substance: INFIGRATINIB
     Dosage: 75 MILLIGRAM, QD
     Route: 048
     Dates: start: 20220201
  3. TRUSELTIQ [Suspect]
     Active Substance: INFIGRATINIB
     Dosage: 75 MILLIGRAM, QD
     Route: 048
     Dates: start: 2022, end: 20220919
  4. SEVELAMER CARBONATE [Concomitant]
     Active Substance: SEVELAMER CARBONATE

REACTIONS (25)
  - Oropharyngeal blistering [Recovering/Resolving]
  - COVID-19 [Unknown]
  - Hypersensitivity [Unknown]
  - Hot flush [Unknown]
  - Oral pain [Unknown]
  - Oral mucosal erythema [Unknown]
  - Erythema [Unknown]
  - Ageusia [Unknown]
  - Incorrect dosage administered [Unknown]
  - Blister [Recovering/Resolving]
  - Skin exfoliation [Unknown]
  - Product dose omission issue [Unknown]
  - Pruritus [Recovered/Resolved]
  - Gastrooesophageal reflux disease [Not Recovered/Not Resolved]
  - Oral mucosal blistering [Recovering/Resolving]
  - Blood phosphorus increased [Unknown]
  - Stomatitis [Recovered/Resolved]
  - Fatigue [Not Recovered/Not Resolved]
  - Decreased appetite [Unknown]
  - Nausea [Unknown]
  - Diarrhoea [Unknown]
  - Arthralgia [Unknown]
  - Alopecia [Unknown]
  - Pain in extremity [Unknown]
  - Dyspepsia [Not Recovered/Not Resolved]
